FAERS Safety Report 13110352 (Version 1)
Quarter: 2017Q1

REPORT INFORMATION
  Report Type: Spontaneous
  Country: US (occurrence: US)
  Receive Date: 20170112
  Receipt Date: 20170112
  Transmission Date: 20170428
  Serious: Yes (Other)
  Sender: FDA-Public Use
  Company Number: US-ROCHE-1098669

PATIENT
  Age: 58 Year
  Sex: Male

DRUGS (6)
  1. HEPARIN [Concomitant]
     Active Substance: HEPARIN SODIUM
     Dosage: 5000 UNIT IUP
     Route: 065
  2. ACTIVASE [Suspect]
     Active Substance: ALTEPLASE
     Indication: MYOCARDIAL INFARCTION
     Dosage: IUP
     Route: 065
     Dates: start: 19880906
  3. MORPHINE SULFATE. [Concomitant]
     Active Substance: MORPHINE SULFATE
     Dosage: IUP
     Route: 065
  4. NITROGLYCERIN (NTG) [Concomitant]
     Dosage: 25 MCG/250 CC
     Route: 065
  5. ACTIVASE [Suspect]
     Active Substance: ALTEPLASE
     Dosage: 50 MCGTTS/MIN
     Route: 065
     Dates: start: 19880906
  6. LIDOCAINE. [Concomitant]
     Active Substance: LIDOCAINE
     Dosage: IUP
     Route: 065

REACTIONS (4)
  - Bradycardia [Unknown]
  - Somnolence [Unknown]
  - Pain [Unknown]
  - Ventricular tachycardia [Unknown]
